FAERS Safety Report 5496389-5 (Version None)
Quarter: 2007Q4

REPORT INFORMATION
  Report Type: 
  Country: None (occurrence: None)
  Receive Date: 20071023
  Receipt Date: 20071023
  Transmission Date: 20080405
  Serious: Yes (Other)
  Sender: FDA-Public Use
  Company Number: None

PATIENT
  Sex: Female
  Weight: 52.6173 kg

DRUGS (2)
  1. TRAMADOL HCL [Suspect]
     Indication: ARTHRALGIA
     Dosage: 50 MG 1 TO 2 TABS Q6 H PO
     Route: 048
     Dates: start: 20071007, end: 20071008
  2. TRAMADOL HCL [Suspect]
     Indication: PAIN
     Dosage: 50 MG 1 TO 2 TABS Q6 H PO
     Route: 048
     Dates: start: 20071007, end: 20071008

REACTIONS (4)
  - DIZZINESS [None]
  - HYPERHIDROSIS [None]
  - NAUSEA [None]
  - PHARMACEUTICAL PRODUCT COMPLAINT [None]
